FAERS Safety Report 9069367 (Version 1)
Quarter: 2013Q1

REPORT INFORMATION
  Report Type: Spontaneous
  Country: US (occurrence: US)
  Receive Date: 20130131
  Receipt Date: 20130131
  Transmission Date: 20140127
  Serious: No
  Sender: FDA-Public Use
  Company Number: US-ABBOTT-12P-163-0981589-00

PATIENT
  Sex: Female
  Weight: 45.4 kg

DRUGS (9)
  1. HUMIRA [Suspect]
     Indication: PSORIATIC ARTHROPATHY
     Dates: start: 2008
  2. HUMIRA [Suspect]
     Indication: GUTTATE PSORIASIS
  3. METHOTREXATE [Suspect]
     Indication: PSORIATIC ARTHROPATHY
  4. METHOTREXATE [Suspect]
     Indication: GUTTATE PSORIASIS
     Dates: end: 201209
  5. FISH OIL [Concomitant]
     Indication: SUPPLEMENTATION THERAPY
  6. GLUCOSAMINE [Concomitant]
     Indication: SUPPLEMENTATION THERAPY
  7. CALCITRATE [Concomitant]
     Indication: SUPPLEMENTATION THERAPY
  8. UNKNOWN TOPICALS [Concomitant]
     Indication: PSORIASIS
  9. DIURETICS [Concomitant]
     Indication: PRODUCT USED FOR UNKNOWN INDICATION

REACTIONS (11)
  - Off label use [Not Recovered/Not Resolved]
  - Guttate psoriasis [Not Recovered/Not Resolved]
  - Drug ineffective [Not Recovered/Not Resolved]
  - Generalised erythema [Not Recovered/Not Resolved]
  - Drug ineffective [Not Recovered/Not Resolved]
  - Stomatitis [Not Recovered/Not Resolved]
  - Pruritus [Not Recovered/Not Resolved]
  - Alopecia [Not Recovered/Not Resolved]
  - Regurgitation [Recovered/Resolved]
  - Weight decreased [Not Recovered/Not Resolved]
  - Stress [Unknown]
